FAERS Safety Report 16668999 (Version 1)
Quarter: 2019Q3

REPORT INFORMATION
  Report Type: Spontaneous
  Country: PT (occurrence: PT)
  Receive Date: 20190805
  Receipt Date: 20190805
  Transmission Date: 20191004
  Serious: Yes (Other)
  Sender: FDA-Public Use
  Company Number: PT-JNJFOC-20190802596

PATIENT
  Age: 19 Year
  Sex: Female

DRUGS (1)
  1. RIVAROXABAN [Suspect]
     Active Substance: RIVAROXABAN
     Indication: ISCHAEMIC STROKE
     Route: 048

REACTIONS (5)
  - Cardiac failure [Unknown]
  - Off label use [Unknown]
  - Intracardiac thrombus [Unknown]
  - Product use in unapproved indication [Unknown]
  - Mitral valve incompetence [Unknown]
